FAERS Safety Report 12143969 (Version 1)
Quarter: 2016Q1

REPORT INFORMATION
  Report Type: Spontaneous
  Country: US (occurrence: US)
  Receive Date: 20160304
  Receipt Date: 20160304
  Transmission Date: 20160526
  Serious: No
  Sender: FDA-Public Use
  Company Number: US-JNJFOC-20160208193

PATIENT
  Age: 53 Year
  Sex: Female
  Weight: 90.72 kg

DRUGS (2)
  1. WOMENS ROGAINE [Suspect]
     Active Substance: MINOXIDIL
     Route: 061
  2. WOMENS ROGAINE [Suspect]
     Active Substance: MINOXIDIL
     Indication: ALOPECIA
     Dosage: ABOUT 2 DROPPERFULS, 1-2X/DAY, BUT NOT EVERYDAY
     Route: 061

REACTIONS (2)
  - Product use issue [Unknown]
  - Off label use [Unknown]
